FAERS Safety Report 5748459-1 (Version None)
Quarter: 2008Q2

REPORT INFORMATION
  Report Type: 
  Country: None (occurrence: None)
  Receive Date: 20080523
  Receipt Date: 20080512
  Transmission Date: 20081010
  Serious: Yes (Hospitalization)
  Sender: FDA-Public Use
  Company Number: US-PFIZER INC-2008040688

PATIENT
  Sex: Female
  Weight: 72.6 kg

DRUGS (7)
  1. XANAX [Suspect]
     Indication: MULTIPLE SCLEROSIS
     Route: 048
  2. CYMBALTA [Concomitant]
     Indication: DEPRESSION
  3. PROVIGIL [Concomitant]
  4. DETROL LA [Concomitant]
     Indication: BLADDER DISORDER
  5. PRILOSEC [Concomitant]
  6. REMERON [Concomitant]
  7. COPAXONE [Concomitant]

REACTIONS (1)
  - MULTIPLE SCLEROSIS [None]
